FAERS Safety Report 23138060 (Version 1)
Quarter: 2023Q4

REPORT INFORMATION
  Report Type: Spontaneous
  Country: JP (occurrence: JP)
  Receive Date: 20231102
  Receipt Date: 20231102
  Transmission Date: 20240110
  Serious: Yes (Hospitalization, Other)
  Sender: FDA-Public Use
  Company Number: JP-VIATRISJAPAN-2023M1101575AA

PATIENT
  Age: 4 Decade
  Sex: Male

DRUGS (3)
  1. VENLAFAXINE HYDROCHLORIDE [Suspect]
     Active Substance: VENLAFAXINE HYDROCHLORIDE
     Indication: Depression
     Dosage: 75 MILLIGRAM, QD
     Route: 065
  2. LATUDA [Suspect]
     Active Substance: LURASIDONE HYDROCHLORIDE
     Indication: Depression
     Dosage: 20 MILLIGRAM, QD
     Route: 048
  3. GABAPENTIN ENACARBIL [Concomitant]
     Active Substance: GABAPENTIN ENACARBIL
     Indication: Product used for unknown indication
     Dosage: 300 MILLIGRAM, QD
     Route: 065

REACTIONS (2)
  - Suicidal ideation [Recovered/Resolved]
  - Akathisia [Recovered/Resolved]
